FAERS Safety Report 21962869 (Version 1)
Quarter: 2023Q1

REPORT INFORMATION
  Report Type: Spontaneous
  Country: US (occurrence: None)
  Receive Date: 20230207
  Receipt Date: 20230207
  Transmission Date: 20230418
  Serious: Yes (Hospitalization)
  Sender: FDA-Public Use
  Company Number: 2023A025428

PATIENT
  Age: 75 Year
  Sex: Female
  Weight: 86.2 kg

DRUGS (3)
  1. BUDESONIDE\FORMOTEROL\GLYCOPYRRONIUM [Suspect]
     Active Substance: BUDESONIDE\FORMOTEROL\GLYCOPYRRONIUM
     Indication: Chronic obstructive pulmonary disease
     Dosage: 160MCG/9MCG/4.8MCG, 2 PUFFS, 2 TIMES A DAY
     Route: 055
  2. ALBUTEROL [Concomitant]
     Active Substance: ALBUTEROL
  3. OXYGEN [Concomitant]
     Active Substance: OXYGEN
     Dosage: 24 HOURS A DAY
     Route: 045

REACTIONS (5)
  - Chest pain [Unknown]
  - Wrong technique in device usage process [Unknown]
  - Incorrect dose administered by device [Unknown]
  - Product dose omission issue [Unknown]
  - Device malfunction [Unknown]

NARRATIVE: CASE EVENT DATE: 20220101
